FAERS Safety Report 22627936 (Version 4)
Quarter: 2025Q1

REPORT INFORMATION
  Report Type: Report from Study
  Country: BR (occurrence: BR)
  Receive Date: 20230622
  Receipt Date: 20250124
  Transmission Date: 20250408
  Serious: Yes (Hospitalization, Disabling, Other)
  Sender: MYLAN
  Company Number: BR-MYLANLABS-2023M1063242

PATIENT
  Sex: Female
  Weight: 58 kg

DRUGS (15)
  1. ALPRAZOLAM [Suspect]
     Active Substance: ALPRAZOLAM
     Indication: Anxiety
     Dosage: 2 MILLIGRAM, TID (THREE TIMES A DAY)
     Route: 048
  2. ALPRAZOLAM [Suspect]
     Active Substance: ALPRAZOLAM
     Indication: Tremor
     Dosage: 2 MILLIGRAM, BID (TWICE A DAY)
     Route: 048
     Dates: start: 2023
  3. ALPRAZOLAM [Suspect]
     Active Substance: ALPRAZOLAM
     Indication: Fear
     Route: 065
     Dates: start: 2014
  4. ALPRAZOLAM [Suspect]
     Active Substance: ALPRAZOLAM
     Indication: Panic attack
     Dosage: UNK, QD
     Route: 048
     Dates: start: 202412
  5. ALPRAZOLAM [Suspect]
     Active Substance: ALPRAZOLAM
     Route: 048
  6. ALPRAZOLAM [Suspect]
     Active Substance: ALPRAZOLAM
     Indication: Anxiety
     Route: 065
  7. ALPRAZOLAM [Suspect]
     Active Substance: ALPRAZOLAM
     Indication: Tremor
  8. ALPRAZOLAM [Suspect]
     Active Substance: ALPRAZOLAM
     Indication: Fear
  9. ALPRAZOLAM [Suspect]
     Active Substance: ALPRAZOLAM
     Indication: Tremor
     Route: 065
  10. ALPRAZOLAM [Suspect]
     Active Substance: ALPRAZOLAM
     Indication: Anxiety
  11. ALPRAZOLAM [Suspect]
     Active Substance: ALPRAZOLAM
     Indication: Fear
  12. Alenia [Concomitant]
     Indication: Asthma
     Route: 065
  13. ALBUTEROL [Concomitant]
     Active Substance: ALBUTEROL
     Indication: Asthma
     Route: 065
  14. ZOLPIDEM TARTRATE [Concomitant]
     Active Substance: ZOLPIDEM TARTRATE
     Indication: Sleep disorder
     Dosage: UNK, QD (ONCE A DAY)
     Route: 065
  15. BECLOMETHASONE DIPROPIONATE\FORMOTEROL FUMARATE\GLYCOPYRROLATE [Concomitant]
     Active Substance: BECLOMETHASONE DIPROPIONATE\FORMOTEROL FUMARATE\GLYCOPYRROLATE
     Indication: Asthma
     Dosage: 2 DOSAGE FORM, BID
     Route: 065
     Dates: start: 2023

REACTIONS (33)
  - Chikungunya virus infection [Unknown]
  - Pulmonary embolism [Not Recovered/Not Resolved]
  - Haematological infection [Not Recovered/Not Resolved]
  - Dengue haemorrhagic fever [Unknown]
  - Gait disturbance [Recovered/Resolved]
  - COVID-19 [Unknown]
  - Pain [Not Recovered/Not Resolved]
  - Anaemia [Not Recovered/Not Resolved]
  - Dengue fever [Unknown]
  - Lung disorder [Not Recovered/Not Resolved]
  - Bronchitis [Unknown]
  - Dyspnoea [Unknown]
  - Cough [Unknown]
  - Pyrexia [Unknown]
  - Productive cough [Unknown]
  - Memory impairment [Not Recovered/Not Resolved]
  - Asthma [Recovered/Resolved]
  - Pulmonary pain [Not Recovered/Not Resolved]
  - Influenza [Unknown]
  - Anxiety [Not Recovered/Not Resolved]
  - Withdrawal syndrome [Recovered/Resolved]
  - Nervousness [Not Recovered/Not Resolved]
  - Overdose [Not Recovered/Not Resolved]
  - Headache [Unknown]
  - Drug ineffective [Unknown]
  - Therapeutic response unexpected [Not Recovered/Not Resolved]
  - Off label use [Not Recovered/Not Resolved]
  - Product use issue [Not Recovered/Not Resolved]
  - Product packaging quantity issue [Unknown]
  - Poor quality product administered [Recovered/Resolved]
  - Product physical issue [Unknown]
  - Product substitution issue [Recovered/Resolved]
  - Product availability issue [Recovered/Resolved]

NARRATIVE: CASE EVENT DATE: 20200101
